FAERS Safety Report 19119616 (Version 1)
Quarter: 2021Q2

REPORT INFORMATION
  Report Type: Other
  Country: FR (occurrence: FR)
  Receive Date: 20210412
  Receipt Date: 20210412
  Transmission Date: 20210717
  Serious: Yes (Hospitalization, Other)
  Sender: FDA-Public Use
  Company Number: FR-DEXPHARM-20210430

PATIENT
  Age: 41 Year
  Sex: Female

DRUGS (7)
  1. ZOPICLONE [Interacting]
     Active Substance: ZOPICLONE
  2. VENLAFAXINE [Suspect]
     Active Substance: VENLAFAXINE HYDROCHLORIDE
  3. ALPRAZOLAM. [Concomitant]
     Active Substance: ALPRAZOLAM
  4. TRAMADOL. [Interacting]
     Active Substance: TRAMADOL
  5. OFLOXACIN. [Concomitant]
     Active Substance: OFLOXACIN
  6. TETRAHYDROCANNABINOL [Interacting]
     Active Substance: DRONABINOL
  7. FUROSEMIDE. [Concomitant]
     Active Substance: FUROSEMIDE

REACTIONS (2)
  - Cardiac valve disease [Unknown]
  - Drug interaction [Unknown]
